FAERS Safety Report 11631214 (Version 1)
Quarter: 2015Q4

REPORT INFORMATION
  Report Type: Spontaneous
  Country: JP (occurrence: JP)
  Receive Date: 20151014
  Receipt Date: 20151014
  Transmission Date: 20160304
  Serious: No
  Sender: FDA-Public Use
  Company Number: PHJP2015JP016311

PATIENT
  Age: 68 Year
  Sex: Female

DRUGS (2)
  1. TASIGNA [Suspect]
     Active Substance: NILOTINIB
     Indication: CHRONIC MYELOID LEUKAEMIA
     Dosage: 150 MG, UNK
     Route: 048
     Dates: end: 20150915
  2. NOLVADEX//TAMOXIFEN CITRATE [Concomitant]
     Indication: BREAST CANCER
     Route: 065

REACTIONS (5)
  - Necrobiosis lipoidica diabeticorum [Recovered/Resolved]
  - Fluid retention [Recovering/Resolving]
  - Induration [Recovering/Resolving]
  - Restless legs syndrome [Recovering/Resolving]
  - Oedema [Recovering/Resolving]
